FAERS Safety Report 22096396 (Version 3)
Quarter: 2023Q2

REPORT INFORMATION
  Report Type: Spontaneous
  Country: US (occurrence: US)
  Receive Date: 20230315
  Receipt Date: 20230509
  Transmission Date: 20230721
  Serious: No
  Sender: FDA-Public Use
  Company Number: US-UNITED THERAPEUTICS-UNT-2023-006849

PATIENT
  Sex: Female

DRUGS (2)
  1. TYVASO [Suspect]
     Active Substance: TREPROSTINIL
     Indication: Product used for unknown indication
     Dosage: UNK
  2. TYVASO [Suspect]
     Active Substance: TREPROSTINIL
     Dosage: 128 ?G, QID

REACTIONS (5)
  - Dysphonia [Recovered/Resolved]
  - Aphonia [Recovered/Resolved]
  - Dry mouth [Recovered/Resolved]
  - Oropharyngeal candidiasis [Recovered/Resolved]
  - Off label use [Unknown]
